FAERS Safety Report 8146909-7 (Version None)
Quarter: 2012Q1

REPORT INFORMATION
  Report Type: 
  Country: None (occurrence: None)
  Receive Date: 20120217
  Receipt Date: 20120217
  Transmission Date: 20120608
  Serious: Yes (Death, Other)
  Sender: FDA-Public Use
  Company Number: JP-ABBOTT-10P-087-0670104-00

PATIENT
  Sex: Male

DRUGS (8)
  1. METHOTREXATE [Suspect]
     Indication: PRODUCT USED FOR UNKNOWN INDICATION
     Route: 048
     Dates: end: 20100830
  2. HUMIRA [Suspect]
     Indication: RHEUMATOID ARTHRITIS
     Route: 058
     Dates: start: 20100310, end: 20100720
  3. PREDNISOLONE [Concomitant]
     Dosage: 7.5MG DAILY
     Route: 048
  4. NAFTOPIDIL [Concomitant]
     Indication: DYSURIA
     Route: 048
     Dates: start: 20090801, end: 20110531
  5. PREDNISOLONE [Concomitant]
     Dosage: 5MG DAILY
     Route: 048
  6. PREDNISOLONE [Concomitant]
     Indication: RHEUMATOID ARTHRITIS
     Dosage: 2.5MG DAILY
     Route: 048
  7. LANSOPRAZOLE [Concomitant]
     Indication: GASTROOESOPHAGEAL REFLUX DISEASE
     Route: 048
     Dates: start: 20090801, end: 20110531
  8. LORNOXICAM [Concomitant]
     Indication: RHEUMATOID ARTHRITIS
     Route: 048
     Dates: start: 20090801, end: 20110531

REACTIONS (2)
  - MYELODYSPLASTIC SYNDROME [None]
  - METASTATIC GASTRIC CANCER [None]
